FAERS Safety Report 13538221 (Version 2)
Quarter: 2017Q3

REPORT INFORMATION
  Report Type: Spontaneous
  Country: CH (occurrence: CH)
  Receive Date: 20170512
  Receipt Date: 20170913
  Transmission Date: 20171127
  Serious: Yes (Hospitalization, Other)
  Sender: FDA-Public Use
  Company Number: CH-009507513-1705CHE001293

PATIENT
  Sex: Male

DRUGS (4)
  1. FINASTERIDE. [Suspect]
     Active Substance: FINASTERIDE
     Route: 048
     Dates: end: 201601
  2. PROPECIA [Suspect]
     Active Substance: FINASTERIDE
     Indication: ALOPECIA
     Dosage: UNK
     Route: 048
     Dates: start: 2002, end: 201601
  3. TEMESTA [Concomitant]
     Active Substance: LORAZEPAM
     Dates: start: 2015
  4. CITALOPRAM [Concomitant]
     Active Substance: CITALOPRAM HYDROBROMIDE
     Indication: DEPRESSION
     Dates: start: 2015

REACTIONS (12)
  - Tinnitus [Recovering/Resolving]
  - Loss of consciousness [Recovered/Resolved]
  - Throat clearing [Recovered/Resolved]
  - Loss of libido [Recovered/Resolved]
  - Weight decreased [Recovered/Resolved]
  - Panic attack [Recovered/Resolved]
  - Accident [Unknown]
  - Depression [Recovered/Resolved]
  - Alopecia [Recovered/Resolved]
  - Muscle atrophy [Recovered/Resolved]
  - Hyperhidrosis [Recovered/Resolved]
  - Insomnia [Recovered/Resolved]

NARRATIVE: CASE EVENT DATE: 2015
